FAERS Safety Report 19654965 (Version 1)
Quarter: 2021Q3

REPORT INFORMATION
  Report Type: Spontaneous
  Country: US (occurrence: US)
  Receive Date: 20210803
  Receipt Date: 20210803
  Transmission Date: 20211014
  Serious: Yes (Other)
  Sender: FDA-Public Use
  Company Number: US-COOPERSURGICAL, INC.-US-2021CPS002111

PATIENT
  Age: 40 Year
  Sex: Female
  Weight: 66.67 kg

DRUGS (1)
  1. PARAGARD T 380A [Suspect]
     Active Substance: COPPER
     Indication: CONTRACEPTION
     Dosage: UNK
     Route: 015
     Dates: start: 20210424

REACTIONS (5)
  - Complication of device removal [Not Recovered/Not Resolved]
  - Pain [Unknown]
  - Device breakage [Not Recovered/Not Resolved]
  - Ovarian cyst [Unknown]
  - Foreign body in reproductive tract [Not Recovered/Not Resolved]

NARRATIVE: CASE EVENT DATE: 2021
